FAERS Safety Report 6675311-X (Version None)
Quarter: 2010Q2

REPORT INFORMATION
  Report Type: 
  Country: None (occurrence: None)
  Receive Date: 20100409
  Receipt Date: 20100301
  Transmission Date: 20101027
  Serious: No
  Sender: FDA-Public Use
  Company Number: A0841763A

PATIENT
  Age: 74 Year
  Sex: Female

DRUGS (1)
  1. TYKERB [Suspect]
     Indication: DRUG USE FOR UNKNOWN INDICATION
     Dosage: 1250MG PER DAY
     Route: 065
     Dates: start: 20100123

REACTIONS (8)
  - ABDOMINAL PAIN UPPER [None]
  - BONE PAIN [None]
  - CONSTIPATION [None]
  - DECREASED APPETITE [None]
  - DYSGEUSIA [None]
  - NAUSEA [None]
  - PRURITUS [None]
  - SKIN ULCER [None]
